FAERS Safety Report 20233218 (Version 1)
Quarter: 2021Q4

REPORT INFORMATION
  Report Type: Spontaneous
  Country: US (occurrence: None)
  Receive Date: 20211226
  Receipt Date: 20211226
  Transmission Date: 20220303
  Serious: Yes (Other)
  Sender: FDA-Public Use
  Company Number: None

PATIENT
  Age: 67 Year
  Sex: Male
  Weight: 87.75 kg

DRUGS (9)
  1. TADALAFIL [Suspect]
     Active Substance: TADALAFIL
     Indication: Erectile dysfunction
     Dosage: OTHER QUANTITY : 1 TABLET(S);?
     Route: 048
     Dates: start: 20211119, end: 20211119
  2. VIAGRA [Suspect]
     Active Substance: SILDENAFIL CITRATE
  3. ATORVASTATIN [Concomitant]
     Active Substance: ATORVASTATIN
  4. amlodapine [Concomitant]
  5. LISINOPRIL [Concomitant]
     Active Substance: LISINOPRIL
  6. carvedalol [Concomitant]
  7. clopedragril [Concomitant]
  8. ASPIRIN [Concomitant]
     Active Substance: ASPIRIN
  9. daily multi [Concomitant]

REACTIONS (5)
  - Feeling abnormal [None]
  - Head discomfort [None]
  - Movement disorder [None]
  - Aphasia [None]
  - Disorientation [None]

NARRATIVE: CASE EVENT DATE: 20211119
